FAERS Safety Report 12027429 (Version 1)
Quarter: 2016Q1

REPORT INFORMATION
  Report Type: Report from Study
  Country: US (occurrence: US)
  Receive Date: 20160206
  Receipt Date: 20160206
  Transmission Date: 20160526
  Serious: No
  Sender: FDA-Public Use
  Company Number: US-ABBVIE-15K-163-1490695-00

PATIENT
  Age: 24 Year
  Sex: Male

DRUGS (2)
  1. HUMIRA [Suspect]
     Active Substance: ADALIMUMAB
     Indication: CROHN^S DISEASE
     Dosage: DAY ONE
     Route: 058
     Dates: start: 20151001, end: 20151001
  2. HUMIRA [Suspect]
     Active Substance: ADALIMUMAB
     Dosage: DAY 15
     Route: 058
     Dates: start: 20151015, end: 20151015

REACTIONS (4)
  - Abdominal pain upper [Not Recovered/Not Resolved]
  - Proctalgia [Recovering/Resolving]
  - Gastrointestinal ulcer [Unknown]
  - Headache [Not Recovered/Not Resolved]

NARRATIVE: CASE EVENT DATE: 201510
